FAERS Safety Report 7969075-7 (Version None)
Quarter: 2011Q4

REPORT INFORMATION
  Report Type: 
  Country: None (occurrence: None)
  Receive Date: 20111209
  Receipt Date: 20111207
  Transmission Date: 20120403
  Serious: Yes (Other)
  Sender: FDA-Public Use
  Company Number: US-TEVA-271540USA

PATIENT
  Sex: Female

DRUGS (4)
  1. CLARAVIS [Suspect]
     Dosage: 40 MILLIGRAM;
     Route: 048
     Dates: start: 20110214, end: 20110220
  2. CLARAVIS [Suspect]
     Dosage: 20 MILLIGRAM;
     Route: 048
     Dates: start: 20110214, end: 20110220
  3. ORAL CONTRACEPTIVE NOS [Concomitant]
     Indication: CONTRACEPTION
     Route: 048
  4. ISOTRETINOIN [Suspect]
     Dosage: 20 MILLIGRAM;

REACTIONS (1)
  - UNINTENDED PREGNANCY [None]
